FAERS Safety Report 6358243-6 (Version None)
Quarter: 2009Q3

REPORT INFORMATION
  Report Type: 
  Country: None (occurrence: None)
  Receive Date: 20090916
  Receipt Date: 20090908
  Transmission Date: 20100115
  Serious: Yes (Other)
  Sender: FDA-Public Use
  Company Number: DE-SANOFI-SYNTHELABO-A04200901058

PATIENT
  Sex: Male
  Weight: 80 kg

DRUGS (1)
  1. PLAVIX [Suspect]
     Indication: PLATELET AGGREGATION
     Route: 048
     Dates: start: 20030915, end: 20070131

REACTIONS (7)
  - ARRHYTHMIA [None]
  - CONDITION AGGRAVATED [None]
  - COORDINATION ABNORMAL [None]
  - DIZZINESS [None]
  - DYSPNOEA [None]
  - SINUS BRADYCARDIA [None]
  - VENTRICULAR EXTRASYSTOLES [None]
